FAERS Safety Report 4732515-0 (Version None)
Quarter: 2005Q3

REPORT INFORMATION
  Report Type: 
  Country: None (occurrence: None)
  Receive Date: 20050803
  Receipt Date: 20020110
  Transmission Date: 20060218
  Serious: Yes (Hospitalization, Other)
  Sender: FDA-Public Use
  Company Number: US-GLAXOSMITHKLINE-B0258347A

PATIENT
  Age: 45 Year
  Sex: Female
  Weight: 141 kg

DRUGS (5)
  1. PAROXETINE [Suspect]
     Indication: DEPRESSION
     Dosage: 40MG PER DAY
  2. CLONAZEPAM [Concomitant]
     Dosage: .25MG TWICE PER DAY
  3. DEXTROMETHORPHAN HBR [Concomitant]
  4. PSEUDOEPHEDRINE HCL [Concomitant]
  5. ACETAMINOPHEN [Concomitant]

REACTIONS (5)
  - CLUMSINESS [None]
  - HEADACHE [None]
  - HYPOAESTHESIA [None]
  - ISCHAEMIC STROKE [None]
  - NAUSEA [None]
